FAERS Safety Report 5808853-7 (Version None)
Quarter: 2008Q3

REPORT INFORMATION
  Report Type: 
  Country: None (occurrence: None)
  Receive Date: 20080714
  Receipt Date: 20080702
  Transmission Date: 20090109
  Serious: Yes (Other)
  Sender: FDA-Public Use
  Company Number: ZA-ELI_LILLY_AND_COMPANY-ZA200806002924

PATIENT
  Age: 43 Year
  Sex: Female

DRUGS (2)
  1. CYMBALTA [Suspect]
     Indication: HEADACHE
     Dosage: 30 MG, UNKNOWN
     Route: 048
     Dates: start: 20070601, end: 20070601
  2. CYMBALTA [Suspect]
     Dosage: 60 MG, DAILY (1/D)
     Route: 048
     Dates: start: 20070601, end: 20070601

REACTIONS (2)
  - BLOOD PRESSURE INCREASED [None]
  - SYNCOPE [None]
